FAERS Safety Report 6993285-9 (Version None)
Quarter: 2010Q3

REPORT INFORMATION
  Report Type: 
  Country: None (occurrence: None)
  Receive Date: 20100917
  Receipt Date: 20100615
  Transmission Date: 20110219
  Serious: No
  Sender: FDA-Public Use
  Company Number: US-ASTRAZENECA-2010SE27840

PATIENT
  Age: 56 Year
  Sex: Female
  Weight: 61.2 kg

DRUGS (7)
  1. SEROQUEL [Suspect]
     Indication: SLEEP DISORDER
     Route: 048
     Dates: start: 20050101
  2. SEROQUEL [Suspect]
     Indication: BIPOLAR DISORDER
     Route: 048
     Dates: start: 20050101
  3. SEROQUEL [Suspect]
     Route: 048
     Dates: start: 20090201
  4. SEROQUEL [Suspect]
     Route: 048
     Dates: start: 20090201
  5. SEROQUEL [Suspect]
     Route: 048
  6. SEROQUEL [Suspect]
     Route: 048
  7. TRILEPTAL [Concomitant]
     Route: 048

REACTIONS (6)
  - DRUG DOSE OMISSION [None]
  - DYSKINESIA [None]
  - INSOMNIA [None]
  - LIMB DISCOMFORT [None]
  - MOOD SWINGS [None]
  - WEIGHT INCREASED [None]
